FAERS Safety Report 8717141 (Version 2)
Quarter: 2012Q4

REPORT INFORMATION
  Report Type: Report from Study
  Country: DE (occurrence: DE)
  Receive Date: 20120810
  Receipt Date: 20120924
  Transmission Date: 20130627
  Serious: Yes (Other)
  Sender: FDA-Public Use
  Company Number: DE-NOVOPROD-357000

PATIENT
  Age: 10 Year
  Sex: Female
  Weight: 32 kg

DRUGS (3)
  1. NORDITROPIN VIAL [Suspect]
     Indication: HYPOPITUITARISM
     Dosage: 1 mg, qd
     Route: 058
     Dates: start: 20100518
  2. THYROXIN [Concomitant]
     Indication: HYPOTHYROIDISM
     Dosage: 7.5 ?g, qd
     Route: 048
     Dates: start: 2007
  3. CORTISOL                           /00014602/ [Concomitant]
     Indication: BLOOD CORTISOL DECREASED
     Dosage: 9, qd
     Route: 048
     Dates: start: 2007

REACTIONS (1)
  - Osteochondrosis [Not Recovered/Not Resolved]
